FAERS Safety Report 6580732-X (Version None)
Quarter: 2010Q1

REPORT INFORMATION
  Report Type: 
  Country: None (occurrence: None)
  Receive Date: 20100212
  Receipt Date: 20100204
  Transmission Date: 20100710
  Serious: Yes (Hospitalization, Disabling)
  Sender: FDA-Public Use
  Company Number: CA-JNJFOC-20100203608

PATIENT
  Sex: Male
  Weight: 100 kg

DRUGS (6)
  1. REMICADE [Suspect]
     Indication: RHEUMATOID ARTHRITIS
     Route: 042
     Dates: start: 20080714, end: 20090102
  2. REMICADE [Suspect]
     Indication: REITER'S SYNDROME
     Route: 042
     Dates: start: 20080714, end: 20090102
  3. ARTHROTEC [Concomitant]
  4. VOLTAREN [Concomitant]
  5. PRED FORTE [Concomitant]
  6. SERC [Concomitant]

REACTIONS (4)
  - ACTIVITIES OF DAILY LIVING IMPAIRED [None]
  - AMNESIA [None]
  - CHEST PAIN [None]
  - INFUSION RELATED REACTION [None]
